FAERS Safety Report 11240889 (Version 2)
Quarter: 2015Q4

REPORT INFORMATION
  Report Type: Spontaneous
  Country: US (occurrence: US)
  Receive Date: 20150706
  Receipt Date: 20151113
  Transmission Date: 20160304
  Serious: Yes (Other)
  Sender: FDA-Public Use
  Company Number: US-JNJFOC-20150621934

PATIENT
  Sex: Female

DRUGS (13)
  1. GRANULOCYTE-COLONY STIMULATING FACTOR [Concomitant]
     Active Substance: FILGRASTIM
     Route: 065
  2. CISPLATIN. [Suspect]
     Active Substance: CISPLATIN
     Indication: ENDOMETRIAL CANCER
     Route: 042
  3. PACLITAXEL. [Suspect]
     Active Substance: PACLITAXEL
     Indication: ENDOMETRIAL CANCER
     Route: 033
  4. CISPLATIN. [Suspect]
     Active Substance: CISPLATIN
     Indication: ENDOMETRIAL CANCER
     Route: 042
  5. CISPLATIN. [Suspect]
     Active Substance: CISPLATIN
     Indication: ENDOMETRIAL CANCER
     Route: 042
  6. CISPLATIN. [Suspect]
     Active Substance: CISPLATIN
     Indication: ENDOMETRIAL CANCER
     Route: 033
  7. PACLITAXEL. [Suspect]
     Active Substance: PACLITAXEL
     Indication: ENDOMETRIAL CANCER
     Route: 033
  8. PACLITAXEL. [Suspect]
     Active Substance: PACLITAXEL
     Indication: ENDOMETRIAL CANCER
     Route: 033
  9. CISPLATIN. [Suspect]
     Active Substance: CISPLATIN
     Indication: ENDOMETRIAL CANCER
     Route: 042
  10. PACLITAXEL. [Suspect]
     Active Substance: PACLITAXEL
     Indication: ENDOMETRIAL CANCER
     Route: 033
  11. CISPLATIN. [Suspect]
     Active Substance: CISPLATIN
     Indication: ENDOMETRIAL CANCER
     Route: 033
  12. DOXORUBICIN HYDROCHLORIDE. [Suspect]
     Active Substance: DOXORUBICIN HYDROCHLORIDE
     Indication: ENDOMETRIAL CANCER
     Route: 042
  13. DOXORUBICIN HYDROCHLORIDE. [Suspect]
     Active Substance: DOXORUBICIN HYDROCHLORIDE
     Indication: ENDOMETRIAL CANCER
     Route: 042

REACTIONS (28)
  - Cardiac disorder [Unknown]
  - Adverse drug reaction [Unknown]
  - Infection [Unknown]
  - Vomiting [Unknown]
  - Thrombocytopenia [Unknown]
  - Haemorrhage [Unknown]
  - Coagulopathy [Unknown]
  - Nervous system disorder [Unknown]
  - Musculoskeletal disorder [Unknown]
  - Metabolic disorder [Unknown]
  - Urogenital disorder [Unknown]
  - Nausea [Unknown]
  - Leukopenia [Unknown]
  - Neutropenia [Unknown]
  - Diarrhoea [Unknown]
  - Anaemia [Unknown]
  - Hearing impaired [Unknown]
  - Skin disorder [Unknown]
  - Device malfunction [Unknown]
  - Lymphatic disorder [Unknown]
  - Neuropathy peripheral [Unknown]
  - Pain [Unknown]
  - Febrile neutropenia [Unknown]
  - Visual impairment [Unknown]
  - Cachexia [Unknown]
  - Off label use [Unknown]
  - Hypersensitivity [Unknown]
  - Lung disorder [Unknown]
